FAERS Safety Report 12562367 (Version 3)
Quarter: 2017Q2

REPORT INFORMATION
  Report Type: Report from Study
  Country: IT (occurrence: IT)
  Receive Date: 20160715
  Receipt Date: 20170428
  Transmission Date: 20170830
  Serious: Yes (Hospitalization)
  Sender: FDA-Public Use
  Company Number: IT-CELGENEUS-ITA-2015121048

PATIENT
  Age: 41 Year
  Sex: Female

DRUGS (23)
  1. ROMIDEPSIN [Suspect]
     Active Substance: ROMIDEPSIN
     Dosage: 14 MILLIGRAM/SQ. METER
     Route: 041
     Dates: start: 20160112, end: 20160119
  2. ETOPOSIDE. [Suspect]
     Active Substance: ETOPOSIDE
     Route: 065
     Dates: start: 20151222
  3. DOXORUBICIN [Suspect]
     Active Substance: DOXORUBICIN
     Indication: T-CELL LYMPHOMA
     Route: 065
  4. ROMIDEPSIN [Suspect]
     Active Substance: ROMIDEPSIN
     Dosage: 14 MILLIGRAM/SQ. METER
     Route: 041
     Dates: start: 20160315, end: 20160322
  5. ROMIDEPSIN [Suspect]
     Active Substance: ROMIDEPSIN
     Indication: T-CELL LYMPHOMA
     Dosage: 14MG/M2
     Route: 041
     Dates: start: 20151130, end: 20151207
  6. ROMIDEPSIN [Suspect]
     Active Substance: ROMIDEPSIN
     Dosage: 14 MILLIGRAM/SQ. METER
     Route: 041
     Dates: start: 20151222, end: 20151229
  7. ROMIDEPSIN [Suspect]
     Active Substance: ROMIDEPSIN
     Dosage: 14 MILLIGRAM/SQ. METER
     Route: 041
     Dates: start: 20160223, end: 20160301
  8. CYCLOPHOSPHAMIDE. [Suspect]
     Active Substance: CYCLOPHOSPHAMIDE
     Route: 065
     Dates: start: 20151222
  9. CIPROFLOXACIN. [Concomitant]
     Active Substance: CIPROFLOXACIN
     Indication: PRODUCT USED FOR UNKNOWN INDICATION
     Route: 065
  10. VINCRISTINE [Suspect]
     Active Substance: VINCRISTINE
     Indication: T-CELL LYMPHOMA
     Route: 065
  11. CYCLOPHOSPHAMIDE. [Suspect]
     Active Substance: CYCLOPHOSPHAMIDE
     Indication: T-CELL LYMPHOMA
     Route: 065
  12. ETOPOSIDE. [Suspect]
     Active Substance: ETOPOSIDE
     Indication: T-CELL LYMPHOMA
     Route: 065
  13. CEFIXIME. [Concomitant]
     Active Substance: CEFIXIME
     Indication: PRODUCT USED FOR UNKNOWN INDICATION
     Route: 065
  14. DOXORUBICIN [Suspect]
     Active Substance: DOXORUBICIN
     Route: 065
     Dates: start: 20151222
  15. VINCRISTINE [Suspect]
     Active Substance: VINCRISTINE
     Route: 065
     Dates: start: 20151222
  16. METHYLPREDNISOLONE. [Suspect]
     Active Substance: METHYLPREDNISOLONE
     Indication: T-CELL LYMPHOMA
     Route: 065
  17. TRIMETHOPRIM. [Concomitant]
     Active Substance: TRIMETHOPRIM
     Indication: PRODUCT USED FOR UNKNOWN INDICATION
     Route: 065
  18. SULFAMETHOXAZOLE [Concomitant]
     Active Substance: SULFAMETHOXAZOLE
     Indication: PRODUCT USED FOR UNKNOWN INDICATION
     Route: 065
  19. OMEPRAZOLE. [Concomitant]
     Active Substance: OMEPRAZOLE
     Indication: PRODUCT USED FOR UNKNOWN INDICATION
     Route: 065
  20. ALLOPURINOL. [Concomitant]
     Active Substance: ALLOPURINOL
     Indication: PRODUCT USED FOR UNKNOWN INDICATION
     Route: 065
  21. POTASSIUM CHLORIDE. [Concomitant]
     Active Substance: POTASSIUM CHLORIDE
     Indication: PRODUCT USED FOR UNKNOWN INDICATION
     Route: 065
  22. ROMIDEPSIN [Suspect]
     Active Substance: ROMIDEPSIN
     Dosage: 14 MILLIGRAM/SQ. METER
     Route: 041
     Dates: start: 20160202, end: 20160209
  23. VALGANCICLOVIR. [Concomitant]
     Active Substance: VALGANCICLOVIR
     Indication: PRODUCT USED FOR UNKNOWN INDICATION
     Route: 065
     Dates: start: 20151201

REACTIONS (7)
  - Oxygen saturation decreased [Recovered/Resolved]
  - Pyrexia [Recovered/Resolved]
  - Febrile neutropenia [Recovering/Resolving]
  - Vomiting [Recovered/Resolved]
  - Pyrexia [Recovered/Resolved]
  - Vomiting [Recovered/Resolved]
  - Chills [Recovered/Resolved]

NARRATIVE: CASE EVENT DATE: 20151130
